FAERS Safety Report 4698659-7 (Version None)
Quarter: 2005Q2

REPORT INFORMATION
  Report Type: 
  Country: None (occurrence: None)
  Receive Date: 20050622
  Receipt Date: 20050607
  Transmission Date: 20051028
  Serious: Yes (Hospitalization)
  Sender: FDA-Public Use
  Company Number: 2005001076

PATIENT
  Age: 46 Year
  Sex: Female

DRUGS (7)
  1. TARCEVA [Suspect]
     Indication: NON-SMALL CELL LUNG CANCER
     Dosage: 150 MG (OD), ORAL
     Route: 048
  2. LOVENOX [Concomitant]
  3. PREVACID [Concomitant]
  4. ATIVAN [Concomitant]
  5. MORPHINE [Concomitant]
  6. SONATA [Concomitant]
  7. AMOXICILLIN [Concomitant]

REACTIONS (7)
  - ANOREXIA [None]
  - MALIGNANT NEOPLASM PROGRESSION [None]
  - MEDIASTINAL DISORDER [None]
  - NAUSEA [None]
  - NON-SMALL CELL LUNG CANCER METASTATIC [None]
  - PNEUMONIA [None]
  - WHITE BLOOD CELL COUNT INCREASED [None]
